FAERS Safety Report 6412129-7 (Version None)
Quarter: 2009Q4

REPORT INFORMATION
  Report Type: 
  Country: None (occurrence: None)
  Receive Date: 20091023
  Receipt Date: 20091013
  Transmission Date: 20100525
  Serious: Yes (Hospitalization)
  Sender: FDA-Public Use
  Company Number: DE-ABBOTT-09P-062-0602513-00

PATIENT
  Sex: Male
  Weight: 77.5 kg

DRUGS (4)
  1. KALETRA [Suspect]
     Indication: HIV INFECTION
     Dosage: 2X2
     Route: 048
     Dates: start: 20090403
  2. TRUVADA [Concomitant]
     Indication: HIV INFECTION
     Dosage: 1X1
     Route: 048
     Dates: start: 20090403
  3. LOPERAMIDE [Concomitant]
     Indication: DIARRHOEA
     Dates: start: 20090403
  4. NOVALGIN [Concomitant]
     Indication: DRUG USE FOR UNKNOWN INDICATION
     Dosage: 2X30

REACTIONS (2)
  - APPENDICITIS [None]
  - CELLULITIS [None]
